FAERS Safety Report 6021622-0 (Version None)
Quarter: 2008Q4

REPORT INFORMATION
  Report Type: 
  Country: None (occurrence: None)
  Receive Date: 20081229
  Receipt Date: 20081218
  Transmission Date: 20090506
  Serious: Yes (Hospitalization, Other)
  Sender: FDA-Public Use
  Company Number: US-JNJFOC-20081205316

PATIENT
  Sex: Female
  Weight: 76.2 kg

DRUGS (5)
  1. REMICADE [Suspect]
     Route: 042
  2. REMICADE [Suspect]
     Indication: INFLAMMATORY BOWEL DISEASE
     Route: 042
  3. 5-ASA [Concomitant]
  4. MERCAPTOPURINE [Concomitant]
  5. BACTRIM [Concomitant]

REACTIONS (1)
  - ABDOMINAL PAIN [None]
